FAERS Safety Report 7818111-7 (Version None)
Quarter: 2011Q4

REPORT INFORMATION
  Report Type: 
  Country: None (occurrence: None)
  Receive Date: 20111017
  Receipt Date: 20111010
  Transmission Date: 20120403
  Serious: Yes (Other)
  Sender: FDA-Public Use
  Company Number: IT-TEVA-305038ISR

PATIENT
  Sex: Female

DRUGS (3)
  1. FLUOROURACIL [Suspect]
     Indication: BREAST CANCER
     Dosage: 870 MILLIGRAM;
     Route: 042
     Dates: start: 20110818, end: 20110825
  2. CYCLOPHOSPHAMIDE [Concomitant]
     Route: 042
     Dates: start: 20110818, end: 20110825
  3. METHOTREXATO [Concomitant]
     Dosage: 55 MILLIGRAM;
     Route: 042
     Dates: start: 20110818, end: 20110825

REACTIONS (3)
  - PYREXIA [None]
  - OROPHARYNGEAL PAIN [None]
  - LYMPHADENOPATHY [None]
